FAERS Safety Report 4481479-6 (Version None)
Quarter: 2004Q3

REPORT INFORMATION
  Report Type: 
  Country: None (occurrence: None)
  Receive Date: 20040923
  Receipt Date: 20040614
  Transmission Date: 20050211
  Serious: No
  Sender: FDA-Public Use
  Company Number: USA040669965

PATIENT
  Age: 59 Year
  Sex: Female
  Weight: 43 kg

DRUGS (3)
  1. FORTEO [Suspect]
     Indication: OSTEOPOROSIS
     Dosage: 20 UG/ 1 DAY
     Dates: start: 20040516
  2. DILANTIN [Concomitant]
  3. FIORICET [Concomitant]

REACTIONS (6)
  - ASTHENIA [None]
  - FEELING ABNORMAL [None]
  - INJECTION SITE PAIN [None]
  - MUSCLE CRAMP [None]
  - NASOPHARYNGITIS [None]
  - NAUSEA [None]
